FAERS Safety Report 10636554 (Version 8)
Quarter: 2015Q2

REPORT INFORMATION
  Report Type: Spontaneous
  Country: IT (occurrence: IT)
  Receive Date: 20141207
  Receipt Date: 20150528
  Transmission Date: 20150821
  Serious: Yes (Hospitalization)
  Sender: FDA-Public Use
  Company Number: IT-009507513-1411ITA000238

PATIENT
  Age: 16 Year
  Sex: Female

DRUGS (47)
  1. TEMOZOLOMIDE. [Suspect]
     Active Substance: TEMOZOLOMIDE
     Indication: BRAIN NEOPLASM MALIGNANT
     Dosage: 1 DF, (1 IN 1 CYCLICAL)
     Route: 048
     Dates: start: 20121115, end: 20121222
  2. ZOFRAN [Concomitant]
     Active Substance: ONDANSETRON HYDROCHLORIDE
     Dosage: UNK
     Dates: start: 20121115, end: 20121115
  3. ZOFRAN [Concomitant]
     Active Substance: ONDANSETRON HYDROCHLORIDE
     Dosage: UNK
     Dates: start: 20121218, end: 20121218
  4. ZOFRAN [Concomitant]
     Active Substance: ONDANSETRON HYDROCHLORIDE
     Dosage: UNK
     Dates: start: 20130102, end: 20130102
  5. LEVETIRACETAM. [Concomitant]
     Active Substance: LEVETIRACETAM
     Dosage: DAILY DOSE: 1000MG
     Route: 065
     Dates: start: 20121011
  6. SOLDESAM [Concomitant]
     Active Substance: DEXAMETHASONE
     Dosage: 0.25 MG, BID
     Route: 048
     Dates: start: 20121016, end: 20121020
  7. BEVACIZUMAB [Suspect]
     Active Substance: BEVACIZUMAB
     Indication: BRAIN NEOPLASM MALIGNANT
     Dosage: 478 MG, CYCLICAL
     Route: 042
     Dates: start: 20120906
  8. ZOFRAN [Concomitant]
     Active Substance: ONDANSETRON HYDROCHLORIDE
     Dosage: UNK
     Dates: start: 20121004, end: 20121004
  9. ZOFRAN [Concomitant]
     Active Substance: ONDANSETRON HYDROCHLORIDE
     Dosage: UNK
     Dates: start: 20130506, end: 20130506
  10. ZOFRAN [Concomitant]
     Active Substance: ONDANSETRON HYDROCHLORIDE
     Dosage: UNK
     Dates: start: 20130715, end: 20130724
  11. ZOFRAN [Concomitant]
     Active Substance: ONDANSETRON HYDROCHLORIDE
     Dosage: UNK
     Dates: start: 20130729, end: 20130729
  12. LEVETIRACETAM. [Concomitant]
     Active Substance: LEVETIRACETAM
     Dosage: 1000 MG, DAILY
     Route: 065
     Dates: start: 20121008
  13. SOLDESAM [Concomitant]
     Active Substance: DEXAMETHASONE
     Dosage: 3 MG, QD
     Route: 048
     Dates: start: 20120910, end: 20120912
  14. SOLDESAM [Concomitant]
     Active Substance: DEXAMETHASONE
     Dosage: 1 MG, BID
     Route: 048
     Dates: start: 20120917, end: 20120919
  15. ZOFRAN [Concomitant]
     Active Substance: ONDANSETRON HYDROCHLORIDE
     Dosage: UNK
     Dates: start: 20130402, end: 20130402
  16. SOLU-CORTEF [Concomitant]
     Active Substance: HYDROCORTISONE SODIUM SUCCINATE
     Dosage: UNK
  17. TRIMETON (CHLORPHENIRAMINE MALEATE) [Concomitant]
     Dosage: UNK
     Dates: start: 20130305, end: 20130305
  18. SOLDESAM [Concomitant]
     Active Substance: DEXAMETHASONE
     Dosage: 0.5 MG, BID
     Route: 048
     Dates: start: 20121005, end: 20121011
  19. LANSOPRAZOLE. [Concomitant]
     Active Substance: LANSOPRAZOLE
     Dosage: UNK
     Route: 065
     Dates: start: 20120921
  20. TEMOZOLOMIDE. [Suspect]
     Active Substance: TEMOZOLOMIDE
     Dosage: 150 MG/M2, CYCLICAL (5 DAYS OF THERAPY, EVERY 28 DAYS), DAILY DOSE 215 MG
     Route: 048
     Dates: start: 20130205, end: 20130209
  21. BEVACIZUMAB [Suspect]
     Active Substance: BEVACIZUMAB
     Dosage: 10 MG/KG, QOW
     Route: 042
     Dates: start: 20121218, end: 20130102
  22. BEVACIZUMAB [Suspect]
     Active Substance: BEVACIZUMAB
     Dosage: 470 MG, QD
     Route: 042
     Dates: start: 20130122
  23. ZOFRAN [Concomitant]
     Active Substance: ONDANSETRON HYDROCHLORIDE
     Dosage: UNK
     Dates: start: 20130122, end: 20130122
  24. OXCARBAZEPINE. [Concomitant]
     Active Substance: OXCARBAZEPINE
     Indication: PROPHYLAXIS
     Dosage: UNK
     Dates: start: 20120821, end: 20121017
  25. BEVACIZUMAB [Suspect]
     Active Substance: BEVACIZUMAB
     Dosage: 10 MG/KG, QOW
     Route: 042
     Dates: start: 20130102
  26. ZOFRAN [Concomitant]
     Active Substance: ONDANSETRON HYDROCHLORIDE
     Dosage: UNK
     Dates: start: 20130219, end: 20130219
  27. ZOFRAN [Concomitant]
     Active Substance: ONDANSETRON HYDROCHLORIDE
     Dosage: UNK
     Dates: start: 20130318, end: 20130318
  28. ZOFRAN [Concomitant]
     Active Substance: ONDANSETRON HYDROCHLORIDE
     Dosage: UNK
     Dates: start: 20130422, end: 20130426
  29. ZOFRAN [Concomitant]
     Active Substance: ONDANSETRON HYDROCHLORIDE
     Dosage: UNK
     Dates: start: 20130701, end: 20130701
  30. LANSOPRAZOLE. [Concomitant]
     Active Substance: LANSOPRAZOLE
     Dosage: 30 MG, QD
     Route: 065
     Dates: start: 20120913
  31. ZOFRAN [Concomitant]
     Active Substance: ONDANSETRON HYDROCHLORIDE
     Dosage: UNK
     Dates: start: 20120906, end: 20120906
  32. ZOFRAN [Concomitant]
     Active Substance: ONDANSETRON HYDROCHLORIDE
     Dosage: UNK
     Dates: start: 20121129, end: 20121129
  33. ZOFRAN [Concomitant]
     Active Substance: ONDANSETRON HYDROCHLORIDE
     Dosage: UNK
     Dates: start: 20130205, end: 20130205
  34. ZOFRAN [Concomitant]
     Active Substance: ONDANSETRON HYDROCHLORIDE
     Dosage: UNK
     Dates: start: 20130603, end: 20130603
  35. ZOFRAN [Concomitant]
     Active Substance: ONDANSETRON HYDROCHLORIDE
     Dosage: UNK
     Dates: start: 20130617, end: 20130621
  36. SOLDESAM [Concomitant]
     Active Substance: DEXAMETHASONE
     Dosage: 2 MG, QD
     Route: 048
     Dates: start: 20120913, end: 20120916
  37. TEMOZOLOMIDE. [Suspect]
     Active Substance: TEMOZOLOMIDE
     Dosage: 220 MG, CYCLICAL (5 DAYS OF THERAPY, EVERY 28 DAYS)
     Route: 048
     Dates: start: 20121218, end: 20121222
  38. ZOFRAN [Concomitant]
     Active Substance: ONDANSETRON HYDROCHLORIDE
     Dosage: UNK
     Dates: start: 20121031, end: 20121031
  39. ZOFRAN [Concomitant]
     Active Substance: ONDANSETRON HYDROCHLORIDE
     Dosage: UNK
     Dates: start: 20130311, end: 20130311
  40. ZOFRAN [Concomitant]
     Active Substance: ONDANSETRON HYDROCHLORIDE
     Dosage: UNK
     Dates: start: 20130325, end: 20130325
  41. SOLDESAM [Concomitant]
     Active Substance: DEXAMETHASONE
     Dosage: 3 MG, BID
     Route: 048
     Dates: start: 20120906, end: 20120909
  42. SOLDESAM [Concomitant]
     Active Substance: DEXAMETHASONE
     Dosage: 1 MG, QD
     Route: 048
     Dates: start: 20120920, end: 20121004
  43. BEVACIZUMAB [Suspect]
     Active Substance: BEVACIZUMAB
     Dosage: 10 MG/KG, QOW
     Route: 042
     Dates: start: 20130219
  44. ZOFRAN [Concomitant]
     Active Substance: ONDANSETRON HYDROCHLORIDE
     Dosage: UNK
     Dates: start: 20120920, end: 20120920
  45. ZOFRAN [Concomitant]
     Active Substance: ONDANSETRON HYDROCHLORIDE
     Dosage: UNK
     Dates: start: 20121018, end: 20121018
  46. ZOFRAN [Concomitant]
     Active Substance: ONDANSETRON HYDROCHLORIDE
     Dosage: UNK
     Dates: start: 20130520, end: 20130524
  47. SOLDESAM [Concomitant]
     Active Substance: DEXAMETHASONE
     Dosage: 0.25 MG, BID
     Route: 048
     Dates: start: 20121012, end: 20121015

REACTIONS (5)
  - Petechiae [Recovered/Resolved]
  - Platelet count decreased [Recovered/Resolved]
  - Thrombocytopenia [Recovered/Resolved]
  - Epistaxis [Recovered/Resolved]
  - Platelet count decreased [Recovered/Resolved]

NARRATIVE: CASE EVENT DATE: 20130111
